FAERS Safety Report 8827581 (Version 2)
Quarter: 2012Q4

REPORT INFORMATION
  Report Type: Report from Study
  Country: DE (occurrence: DE)
  Receive Date: 20121005
  Receipt Date: 20121030
  Transmission Date: 20130627
  Serious: Yes (Hospitalization)
  Sender: FDA-Public Use
  Company Number: DE-ROCHE-1122124

PATIENT
  Age: 59 Year
  Sex: Female
  Weight: 80 kg

DRUGS (12)
  1. CARBOPLATIN [Suspect]
     Indication: BREAST CANCER
     Dosage: dose AUC 1.5, Last dose prior to SAE on 20/Sep/2012
     Route: 042
     Dates: start: 20120816
  2. TRASTUZUMAB [Suspect]
     Indication: BREAST CANCER
     Dosage: Last doe prior to SAE on 06/sep/2012
     Route: 042
     Dates: start: 20120816
  3. LAPATINIB [Suspect]
     Indication: BREAST CANCER
     Dosage: date of last dose prior to sae: 19 september 2012
     Route: 048
     Dates: start: 20120816
  4. LAPATINIB [Suspect]
     Dosage: Last dose prior to SAE on 22/sep/2012
     Route: 048
     Dates: start: 20120921
  5. PACLITAXEL [Suspect]
     Indication: BREAST CANCER
     Dosage: last dose prior to SAE on 20/sep/2012
     Route: 042
     Dates: start: 20120816
  6. LIPOSOMAL DOXORUBICIN [Suspect]
     Indication: BREAST CANCER
     Dosage: last dose prior to SAE on 20/sep/2012
     Route: 042
     Dates: start: 20120816
  7. L-THYROXIN [Concomitant]
     Route: 065
     Dates: start: 1998
  8. RAMIPRIL [Concomitant]
  9. ASS [Concomitant]
     Route: 065
     Dates: start: 2002
  10. PRAVASIN [Concomitant]
     Route: 065
     Dates: start: 2002
  11. METOPROLOL [Concomitant]
     Route: 065
     Dates: start: 2002
  12. PRAMIPEXOLE [Concomitant]
     Route: 065
     Dates: start: 2002

REACTIONS (3)
  - Diarrhoea [Recovered/Resolved]
  - Pulmonary embolism [Not Recovered/Not Resolved]
  - Vomiting [Recovered/Resolved]
